FAERS Safety Report 11148741 (Version 1)
Quarter: 2015Q2

REPORT INFORMATION
  Report Type: Spontaneous
  Country: US (occurrence: None)
  Receive Date: 20150527
  Receipt Date: 20150527
  Transmission Date: 20150821
  Serious: Yes (Hospitalization)
  Sender: FDA-Public Use
  Company Number: 2015NUEUSA00518

PATIENT
  Age: 50 Year
  Sex: Male

DRUGS (9)
  1. NUEDEXTA [Suspect]
     Active Substance: DEXTROMETHORPHAN HYDROBROMIDE\QUINIDINE SULFATE
     Indication: CRANIOCEREBRAL INJURY
     Route: 048
     Dates: start: 2015, end: 2015
  2. KLONOPIN [Concomitant]
     Active Substance: CLONAZEPAM
  3. NUEDEXTA [Suspect]
     Active Substance: DEXTROMETHORPHAN HYDROBROMIDE\QUINIDINE SULFATE
     Indication: AFFECT LABILITY
     Route: 048
     Dates: start: 2015, end: 2015
  4. LITHIUM. [Concomitant]
     Active Substance: LITHIUM
  5. ALL OTHER THERAPEUTIC PRODUCTS ONGOING [Concomitant]
  6. CLONIDINE. [Concomitant]
     Active Substance: CLONIDINE
  7. TRAZODONE [Suspect]
     Active Substance: TRAZODONE HYDROCHLORIDE
     Indication: PRODUCT USED FOR UNKNOWN INDICATION
     Dosage: 200 MG, QD HS
  8. MORPHINE [Concomitant]
     Active Substance: MORPHINE
  9. LATUDA (LURASIDONE HYDROCHLORIDE) [Concomitant]

REACTIONS (9)
  - Bradycardia [None]
  - Anxiety [None]
  - Muscle twitching [None]
  - Asthenia [None]
  - Rash [None]
  - Stevens-Johnson syndrome [None]
  - Confusional state [None]
  - Agitation [None]
  - Hypersensitivity [None]

NARRATIVE: CASE EVENT DATE: 2015
